FAERS Safety Report 6718931-6 (Version None)
Quarter: 2010Q2

REPORT INFORMATION
  Report Type: 
  Country: None (occurrence: None)
  Receive Date: 20100511
  Receipt Date: 20100503
  Transmission Date: 20101027
  Serious: Yes (Other)
  Sender: FDA-Public Use
  Company Number: US-JNJFOC-20100501065

PATIENT
  Sex: Female
  Weight: 108.86 kg

DRUGS (2)
  1. RISPERDAL CONSTA [Suspect]
     Indication: SCHIZOPHRENIA
     Route: 030
  2. RISPERDAL [Suspect]
     Indication: SCHIZOPHRENIA
     Route: 048

REACTIONS (5)
  - ALOPECIA [None]
  - DIABETES MELLITUS [None]
  - HYPERTENSION [None]
  - URINARY INCONTINENCE [None]
  - WALKING AID USER [None]
